FAERS Safety Report 18439994 (Version 2)
Quarter: 2020Q4

REPORT INFORMATION
  Report Type: Spontaneous
  Country: US (occurrence: US)
  Receive Date: 20201029
  Receipt Date: 20201221
  Transmission Date: 20210114
  Serious: Yes (Death, Other)
  Sender: FDA-Public Use
  Company Number: US-009507513-2010USA010788

PATIENT
  Sex: Male
  Weight: 77.55 kg

DRUGS (1)
  1. JANUVIA [Suspect]
     Active Substance: SITAGLIPTIN PHOSPHATE
     Dosage: 50 MILLIGRAM (1 TABLET), DAILY
     Route: 048
     Dates: start: 20160218, end: 20181018

REACTIONS (10)
  - Subdural haematoma [Fatal]
  - Bile duct stone [Unknown]
  - Prostate cancer [Unknown]
  - Enzyme level abnormal [Unknown]
  - Asthenia [Unknown]
  - Pain [Unknown]
  - Extradural haematoma [Unknown]
  - Blood lactate dehydrogenase increased [Unknown]
  - Pancreatic carcinoma [Unknown]
  - Transaminases increased [Unknown]

NARRATIVE: CASE EVENT DATE: 20181031
